FAERS Safety Report 16005352 (Version 2)
Quarter: 2019Q2

REPORT INFORMATION
  Report Type: Spontaneous
  Country: US (occurrence: US)
  Receive Date: 20190226
  Receipt Date: 20190424
  Transmission Date: 20190711
  Serious: No
  Sender: FDA-Public Use
  Company Number: US-PFIZER INC-2019078944

PATIENT
  Age: 82 Year
  Sex: Female
  Weight: 178 kg

DRUGS (3)
  1. JAKAFI [Suspect]
     Active Substance: RUXOLITINIB
     Dosage: 15 MG, 2X/DAY
     Route: 048
  2. ATORVASTATIN CALCIUM. [Suspect]
     Active Substance: ATORVASTATIN CALCIUM
     Dosage: UNK
  3. JAKAFI [Suspect]
     Active Substance: RUXOLITINIB
     Indication: POLYCYTHAEMIA VERA
     Dosage: 15 MG, 2X/DAY
     Route: 048
     Dates: start: 20161202

REACTIONS (6)
  - Spinal stenosis [Unknown]
  - Arthritis [Unknown]
  - Decreased activity [Unknown]
  - Skin exfoliation [Recovering/Resolving]
  - Weight increased [Unknown]
  - Early satiety [Unknown]

NARRATIVE: CASE EVENT DATE: 2017
